FAERS Safety Report 9064844 (Version 2)
Quarter: 2020Q2

REPORT INFORMATION
  Report Type: Spontaneous
  Country: IT (occurrence: IT)
  Receive Date: 20130213
  Receipt Date: 20200514
  Transmission Date: 20200714
  Serious: Yes (Other)
  Sender: FDA-Public Use
  Company Number: IT-ROCHE-1189305

PATIENT
  Age: 22 Year
  Sex: Female

DRUGS (9)
  1. VINCRISTINE [Concomitant]
     Active Substance: VINCRISTINE
  2. RITUXIMAB. [Suspect]
     Active Substance: RITUXIMAB
     Indication: HODGKIN^S DISEASE NODULAR SCLEROSIS STAGE IV
     Dosage: ON DAY 1
     Route: 042
  3. ETOPOSIDE. [Concomitant]
     Active Substance: ETOPOSIDE
  4. BLEOMYCIN [Concomitant]
     Active Substance: BLEOMYCIN SULFATE
  5. CYCLOPHOSPHAMIDE. [Concomitant]
     Active Substance: CYCLOPHOSPHAMIDE
  6. PREDNISONE. [Concomitant]
     Active Substance: PREDNISONE
  7. BENDAMUSTINE [Suspect]
     Active Substance: BENDAMUSTINE
     Indication: HODGKIN^S DISEASE NODULAR SCLEROSIS STAGE IV
     Dosage: ON DAY 1 AND 2
     Route: 065
  8. ADRIAMYCIN [Concomitant]
     Active Substance: DOXORUBICIN HYDROCHLORIDE
  9. PROCARBAZINE [Concomitant]
     Active Substance: PROCARBAZINE

REACTIONS (3)
  - Product use issue [Unknown]
  - Blood bilirubin increased [Unknown]
  - Off label use [Unknown]
